FAERS Safety Report 15793853 (Version 1)
Quarter: 2019Q1

REPORT INFORMATION
  Report Type: Spontaneous
  Country: US (occurrence: US)
  Receive Date: 20190107
  Receipt Date: 20190107
  Transmission Date: 20190417
  Serious: No
  Sender: FDA-Public Use
  Company Number: US-009507513-1901USA001354

PATIENT
  Sex: Female

DRUGS (1)
  1. PROVENTIL [Suspect]
     Active Substance: ALBUTEROL

REACTIONS (5)
  - Nervousness [Unknown]
  - Product use issue [Unknown]
  - Asthenia [Unknown]
  - Polyuria [Unknown]
  - Malaise [Unknown]
